FAERS Safety Report 25602085 (Version 1)
Quarter: 2025Q3

REPORT INFORMATION
  Report Type: Spontaneous
  Country: AR (occurrence: AR)
  Receive Date: 20250724
  Receipt Date: 20250724
  Transmission Date: 20251021
  Serious: Yes (Hospitalization, Other)
  Sender: ALEXION PHARMACEUTICALS
  Company Number: AR-SA-2025SA209992

PATIENT
  Age: 5 Month
  Sex: Male

DRUGS (2)
  1. NIRSEVIMAB [Suspect]
     Active Substance: NIRSEVIMAB
     Route: 065
     Dates: start: 202502, end: 202502
  2. NIRSEVIMAB [Suspect]
     Active Substance: NIRSEVIMAB

REACTIONS (2)
  - Respiratory syncytial virus bronchiolitis [Unknown]
  - Drug ineffective [Unknown]

NARRATIVE: CASE EVENT DATE: 20250708
